FAERS Safety Report 21156013 (Version 2)
Quarter: 2022Q3

REPORT INFORMATION
  Report Type: Spontaneous
  Country: US (occurrence: US)
  Receive Date: 20220801
  Receipt Date: 20220819
  Transmission Date: 20221027
  Serious: Yes (Death, Other)
  Sender: FDA-Public Use
  Company Number: ENDG22-04518

PATIENT
  Age: 7 Year
  Sex: Male
  Weight: 18.6 kg

DRUGS (5)
  1. BOSENTAN [Suspect]
     Active Substance: BOSENTAN
     Indication: Product used for unknown indication
     Dosage: UNK UNKNOWN, UNKNOWN
     Route: 065
     Dates: start: 201907
  2. FAMOTIDINE [Concomitant]
     Active Substance: FAMOTIDINE
     Indication: Gastrooesophageal reflux disease
     Dosage: 10 UNKNOWN, QHS
     Route: 048
  3. TADALAFIL [Concomitant]
     Active Substance: TADALAFIL
     Indication: Pulmonary hypertension
     Dosage: 20 UNKNOWN, OD
     Route: 048
     Dates: start: 201906
  4. REMODULIN [Concomitant]
     Active Substance: TREPROSTINIL
     Indication: Pulmonary hypertension
     Dosage: 40 UNKNOWN, CONT
     Route: 058
     Dates: start: 20200124
  5. LASIX [Concomitant]
     Active Substance: FUROSEMIDE
     Indication: Right ventricular failure
     Dosage: 10 UNKNOWN, BID
     Route: 048
     Dates: start: 201906

REACTIONS (3)
  - Pulmonary hypertension [Fatal]
  - Pneumonia [Fatal]
  - Off label use [Recovered/Resolved]

NARRATIVE: CASE EVENT DATE: 20190701
